FAERS Safety Report 15492638 (Version 2)
Quarter: 2020Q1

REPORT INFORMATION
  Report Type: Report from Study
  Country: UG (occurrence: UG)
  Receive Date: 20181012
  Receipt Date: 20200117
  Transmission Date: 20200409
  Serious: Yes (Congenital Anomaly)
  Sender: FDA-Public Use
  Company Number: UG-VIIV HEALTHCARE LIMITED-UG2018GSK177812

PATIENT
  Sex: Female
  Weight: 2.7 kg

DRUGS (8)
  1. DOLUTEGRAVIR [Suspect]
     Active Substance: DOLUTEGRAVIR
     Indication: HIV INFECTION
     Dosage: 50 UNK, QD
     Route: 064
     Dates: start: 20180423
  2. NEVIRAPINE. [Concomitant]
     Active Substance: NEVIRAPINE
     Dosage: 1.5 ML, UNK
     Dates: start: 20180703, end: 20181004
  3. PARACETAMOL [Concomitant]
     Active Substance: ACETAMINOPHEN
     Dosage: 15 ML, QD
     Dates: start: 20190316, end: 20190321
  4. FOLIC ACID. [Concomitant]
     Active Substance: FOLIC ACID
     Dosage: 1 DF, QD
     Dates: start: 20190316, end: 201903
  5. COTRIMOXAZOLE [Concomitant]
     Active Substance: SULFAMETHOXAZOLE\TRIMETHOPRIM
     Dosage: 240 MG, QD
     Dates: start: 20181218, end: 201904
  6. QUININE SYRUP [Concomitant]
     Dosage: 5 ML, QD
     Dates: start: 20190316, end: 20190321
  7. DIAZEPAM. [Concomitant]
     Active Substance: DIAZEPAM
     Dosage: 0.5 DF, QD
     Dates: start: 20190316, end: 201903
  8. COTRIMOXAZOLE [Concomitant]
     Active Substance: SULFAMETHOXAZOLE\TRIMETHOPRIM
     Dosage: 120 MG, QD
     Dates: start: 20180927, end: 20181217

REACTIONS (3)
  - Congenital skin dimples [Not Recovered/Not Resolved]
  - Birth mark [Recovered/Resolved]
  - Umbilical hernia [Not Recovered/Not Resolved]

NARRATIVE: CASE EVENT DATE: 20180702
